FAERS Safety Report 20737839 (Version 2)
Quarter: 2022Q2

REPORT INFORMATION
  Report Type: Spontaneous
  Country: US (occurrence: US)
  Receive Date: 20220422
  Receipt Date: 20220428
  Transmission Date: 20220721
  Serious: No
  Sender: FDA-Public Use
  Company Number: US-LUNDBECK-DKLU3046421

PATIENT
  Age: 8 Month
  Sex: Female

DRUGS (2)
  1. SABRIL [Suspect]
     Active Substance: VIGABATRIN
     Indication: Infantile spasms
     Route: 048
     Dates: start: 20220308
  2. SABRIL [Suspect]
     Active Substance: VIGABATRIN
     Dosage: DOSE INCREASED
     Route: 065

REACTIONS (1)
  - Drug ineffective [Recovered/Resolved]
